FAERS Safety Report 9715341 (Version 1)
Quarter: 2013Q4

REPORT INFORMATION
  Report Type: Spontaneous
  Country: ES (occurrence: ES)
  Receive Date: 20131127
  Receipt Date: 20131127
  Transmission Date: 20140711
  Serious: Yes (Other)
  Sender: FDA-Public Use
  Company Number: ES-AMGEN-ESPSP2013082302

PATIENT
  Age: 66 Year
  Sex: 0
  Weight: 45 kg

DRUGS (1)
  1. PROLIA [Suspect]
     Indication: OSTEOPOROSIS
     Dosage: 60 MG, UNK
     Route: 058
     Dates: start: 20120911

REACTIONS (2)
  - Myalgia [Recovering/Resolving]
  - Arthritis [Recovered/Resolved]
